FAERS Safety Report 4385818-6 (Version None)
Quarter: 2004Q2

REPORT INFORMATION
  Report Type: 
  Country: None (occurrence: None)
  Receive Date: 20040628
  Receipt Date: 20040524
  Transmission Date: 20050107
  Serious: Yes (Hospitalization)
  Sender: FDA-Public Use
  Company Number: JP-ROCHE-368525

PATIENT
  Age: 71 Year
  Sex: Male
  Weight: 59.3 kg

DRUGS (11)
  1. PEG-INTERFERON A-2A (RO 25-8310) [Suspect]
     Route: 058
     Dates: start: 20040121, end: 20040303
  2. PEG-INTERFERON A-2A (RO 25-8310) [Suspect]
     Route: 058
     Dates: start: 20040310
  3. PEG-INTERFERON A-2A (RO 25-8310) [Suspect]
     Route: 058
     Dates: start: 20040317
  4. PEG-INTERFERON A-2A (RO 25-8310) [Suspect]
     Route: 058
     Dates: start: 20040323, end: 20040421
  5. MARZULENE [Concomitant]
     Dosage: STARTED BEFORE PEG INTERFERON ALFA 2A THERAPY
     Route: 048
  6. SELBEX [Concomitant]
     Dosage: STARTED BEFORE PEG INTERFERON ALFA 2A THERAPY
     Route: 048
  7. NORVASC [Concomitant]
     Dosage: STARTED BEFORE PEG INTERFERON ALFA 2A THERAPY
     Route: 048
  8. BLOPRESS [Concomitant]
     Dosage: STARTED BEFORE PEG INTERFERON ALFA 2A THERAPY
     Route: 048
  9. ALLOPURINOL TAB [Concomitant]
     Dosage: STARTED BEFORE PEG INTERFERON ALFA 2A THERAPY
     Route: 048
  10. LIPITOR [Concomitant]
     Dosage: STARTED BEFORE PEG INTERFERON ALFA 2A THERAPY
     Route: 048
  11. LENDORM [Concomitant]
     Route: 048
     Dates: start: 20040126

REACTIONS (2)
  - PLATELET COUNT DECREASED [None]
  - RENAL IMPAIRMENT [None]
